FAERS Safety Report 9993178 (Version 1)
Quarter: 2014Q1

REPORT INFORMATION
  Report Type: Spontaneous
  Country: US (occurrence: US)
  Receive Date: 20140310
  Receipt Date: 20140310
  Transmission Date: 20141002
  Serious: No
  Sender: FDA-Public Use
  Company Number: US-ABBVIE-13P-163-1145031-00

PATIENT
  Age: 47 Year
  Sex: Female
  Weight: 61.29 kg

DRUGS (1)
  1. LUPRON DEPOT [Suspect]
     Indication: UTERINE LEIOMYOMA
     Dosage: ONE INJECTION SO FAR
     Route: 058
     Dates: start: 20130702

REACTIONS (5)
  - Chest pain [Recovered/Resolved]
  - Hot flush [Not Recovered/Not Resolved]
  - Nausea [Not Recovered/Not Resolved]
  - Dizziness [Recovered/Resolved]
  - Anxiety [Recovered/Resolved]
